FAERS Safety Report 5373809-8 (Version None)
Quarter: 2007Q2

REPORT INFORMATION
  Report Type: 
  Country: None (occurrence: None)
  Receive Date: 20070628
  Receipt Date: 20070619
  Transmission Date: 20071010
  Serious: Yes (Other)
  Sender: FDA-Public Use
  Company Number: US-PFIZER INC-2007049997

PATIENT
  Age: 15 Year
  Sex: Male

DRUGS (1)
  1. GEODON [Suspect]

REACTIONS (3)
  - DELAYED PUBERTY [None]
  - GYNAECOMASTIA [None]
  - WEIGHT INCREASED [None]
